FAERS Safety Report 23592406 (Version 6)
Quarter: 2024Q3

REPORT INFORMATION
  Report Type: Spontaneous
  Country: US (occurrence: US)
  Receive Date: 20240304
  Receipt Date: 20240814
  Transmission Date: 20241016
  Serious: Yes (Other)
  Sender: BAYER
  Company Number: US-BAYER-2024A031621

PATIENT
  Age: 32 Year
  Sex: Male
  Weight: 61.678 kg

DRUGS (10)
  1. JIVI [Suspect]
     Active Substance: DAMOCTOCOG ALFA PEGOL
     Indication: Factor VIII deficiency
     Dosage: UNK
     Route: 042
     Dates: start: 201502, end: 201502
  2. JIVI [Suspect]
     Active Substance: DAMOCTOCOG ALFA PEGOL
     Indication: Factor VIII deficiency
     Dosage: 500 IU
     Route: 042
     Dates: start: 201610, end: 201610
  3. JIVI [Suspect]
     Active Substance: DAMOCTOCOG ALFA PEGOL
     Indication: Factor VIII deficiency
     Dosage: 2 TIMES A WEEK ON MONDAY ANND THURSDAY AND DAILY AS NEEDED.
     Route: 042
     Dates: start: 202303, end: 202303
  4. JIVI [Suspect]
     Active Substance: DAMOCTOCOG ALFA PEGOL
     Indication: Factor VIII deficiency
     Dosage: 2 TIMES A WEEK ON MONDAY AND THURSDAY AND DAILY AS NEEDED.
     Route: 042
     Dates: start: 202303, end: 202303
  5. JIVI [Suspect]
     Active Substance: DAMOCTOCOG ALFA PEGOL
     Indication: Factor VIII deficiency
     Dosage: 2800 IU; 2 TIMES A WEEK ON MONDAY AND THURSDAY AND DAILY AS NEEDED
     Route: 042
  6. JIVI [Suspect]
     Active Substance: DAMOCTOCOG ALFA PEGOL
     Indication: Factor VIII deficiency
     Dosage: 500 IU, QD
     Route: 042
     Dates: start: 202303
  7. JIVI [Suspect]
     Active Substance: DAMOCTOCOG ALFA PEGOL
     Indication: Factor VIII deficiency
     Dosage: 2000 IU, QD
     Route: 042
     Dates: start: 202303
  8. JIVI [Suspect]
     Active Substance: DAMOCTOCOG ALFA PEGOL
     Indication: Factor VIII deficiency
     Dosage: 2800 IU,  SLOW IV PUSH 2 TIMES A WEEK ON MONDAY AND THURSDAY AND DAILY AS NEEDED
     Route: 042
     Dates: start: 202303
  9. JIVI [Suspect]
     Active Substance: DAMOCTOCOG ALFA PEGOL
     Indication: Factor VIII deficiency
     Dosage: 2 DF
  10. JIVI [Suspect]
     Active Substance: DAMOCTOCOG ALFA PEGOL
     Indication: Factor VIII deficiency
     Dosage: 2800 U, BIW
     Route: 042
     Dates: start: 202303

REACTIONS (20)
  - Haemarthrosis [None]
  - Haemarthrosis [None]
  - Muscle haemorrhage [None]
  - Neck pain [None]
  - Chest pain [None]
  - Groin pain [None]
  - Haemarthrosis [None]
  - Haemorrhage [None]
  - Pneumonia [None]
  - Haemorrhage [None]
  - Haemorrhage [Recovered/Resolved]
  - Haemarthrosis [None]
  - Poor venous access [None]
  - Weight decreased [None]
  - Palpitations [None]
  - Skin tightness [None]
  - Injection site erythema [None]
  - Injection site irritation [None]
  - Weight decreased [None]
  - Poor venous access [None]

NARRATIVE: CASE EVENT DATE: 20240406
